FAERS Safety Report 9580146 (Version 1)
Quarter: 2013Q4

REPORT INFORMATION
  Report Type: Spontaneous
  Country: US (occurrence: None)
  Receive Date: 20131001
  Receipt Date: 20131001
  Transmission Date: 20140711
  Serious: No
  Sender: FDA-Public Use
  Company Number: None

PATIENT
  Age: 47 Year
  Sex: Male

DRUGS (1)
  1. STIVERGE [Suspect]
     Indication: COLON CANCER
     Dosage: ONCE
     Route: 048
     Dates: start: 20130620

REACTIONS (2)
  - Oral pain [None]
  - Aphagia [None]
